FAERS Safety Report 24384825 (Version 1)
Quarter: 2024Q4

REPORT INFORMATION
  Report Type: Spontaneous
  Country: US (occurrence: US)
  Receive Date: 20241001
  Receipt Date: 20241001
  Transmission Date: 20250115
  Serious: No
  Sender: ELI LILLY AND CO
  Company Number: US-ELI_LILLY_AND_COMPANY-US202409010789

PATIENT
  Age: 67 Year
  Sex: Female

DRUGS (10)
  1. MOUNJARO [Suspect]
     Active Substance: TIRZEPATIDE
     Indication: Glucose tolerance impaired
     Dosage: 2.5 MG, UNKNOWN
     Route: 058
     Dates: start: 202408
  2. MOUNJARO [Suspect]
     Active Substance: TIRZEPATIDE
     Indication: Glucose tolerance impaired
     Dosage: 2.5 MG, UNKNOWN
     Route: 058
     Dates: start: 202408
  3. MOUNJARO [Suspect]
     Active Substance: TIRZEPATIDE
     Indication: Glucose tolerance impaired
     Dosage: 2.5 MG, UNKNOWN
     Route: 058
     Dates: start: 202408
  4. MOUNJARO [Suspect]
     Active Substance: TIRZEPATIDE
     Indication: Glucose tolerance impaired
     Dosage: 2.5 MG, UNKNOWN
     Route: 058
     Dates: start: 202408
  5. BUSPIRONE [Concomitant]
     Active Substance: BUSPIRONE HYDROCHLORIDE
     Indication: Anxiety
     Dosage: 10 MG, DAILY
  6. METOPROLOL [Concomitant]
     Active Substance: METOPROLOL
     Indication: Heart rate increased
     Dosage: 100 MG, DAILY
     Route: 065
  7. LEVOTHYROXINE [Concomitant]
     Active Substance: LEVOTHYROXINE
     Indication: Thyroid disorder
     Dosage: 75 MG, OTHER (TWICE ON SUNDAY, ONCE/DAY MONDAY-SATURDAY)
  8. SOLIFENACIN [Concomitant]
     Active Substance: SOLIFENACIN
     Indication: Bladder disorder
     Dosage: 5 MG, DAILY
  9. GABAPENTIN [Concomitant]
     Active Substance: GABAPENTIN
     Indication: Neuralgia
     Dosage: 300 MG, OTHER (3X/DAY)
  10. ROSUVASTATIN [Concomitant]
     Active Substance: ROSUVASTATIN
     Indication: Blood cholesterol increased
     Dosage: 10 MG, DAILY

REACTIONS (1)
  - Vision blurred [Unknown]
